FAERS Safety Report 15619718 (Version 2)
Quarter: 2018Q4

REPORT INFORMATION
  Report Type: Report from Study
  Country: None (occurrence: BE)
  Receive Date: 20181115
  Receipt Date: 20181120
  Transmission Date: 20190205
  Serious: Yes (Hospitalization)
  Sender: FDA-Public Use
  Company Number: BE-ABBVIE-18S-013-2509225-00

PATIENT
  Age: 71 Year
  Sex: Female

DRUGS (9)
  1. DUODOPA [Suspect]
     Active Substance: CARBIDOPA\LEVODOPA
     Dosage: MD= 4.5ML, CD= 1.7ML/HR DURING 16HRS, ED= 1.4ML
     Route: 050
     Dates: start: 20180921, end: 20181029
  2. DUODOPA [Suspect]
     Active Substance: CARBIDOPA\LEVODOPA
     Dosage: MD=4.5ML?CD=2.4ML/HR DURING 16HRS?ED=1.5ML
     Route: 050
     Dates: start: 201811
  3. DUODOPA [Suspect]
     Active Substance: CARBIDOPA\LEVODOPA
     Dosage: MD: 4.5ML; CD: 1.7ML/H FOR 16HRS; ED: 1.4ML
     Route: 050
     Dates: start: 20180929, end: 20181105
  4. DUODOPA [Suspect]
     Active Substance: CARBIDOPA\LEVODOPA
     Dosage: MD= 9ML, CD= 3.8ML/HR DURING 16HRS, ED= 2ML
     Route: 050
     Dates: end: 20100107
  5. DUODOPA [Suspect]
     Active Substance: CARBIDOPA\LEVODOPA
     Dosage: DOSES CONTINUOUSLY MONITORED AND ADAPTED
     Route: 050
     Dates: start: 20100107, end: 20180921
  6. DUODOPA [Suspect]
     Active Substance: CARBIDOPA\LEVODOPA
     Indication: PARKINSON^S DISEASE
     Dosage: UNKNOWN DUODOPA DOSAGES
     Route: 050
     Dates: start: 20090707
  7. DUODOPA [Suspect]
     Active Substance: CARBIDOPA\LEVODOPA
     Route: 050
     Dates: start: 20181110, end: 201811
  8. DUODOPA [Suspect]
     Active Substance: CARBIDOPA\LEVODOPA
     Dosage: MD: 4.5ML; CD: 2.3 ML/H FOR 16HRS; ED: 1.4ML
     Route: 050
     Dates: start: 20181105, end: 20181107
  9. DUODOPA [Suspect]
     Active Substance: CARBIDOPA\LEVODOPA
     Dosage: MD: 4.5ML; CD: 2.4 ML/H FOR 16HRS; ED: 1.4ML
     Route: 050
     Dates: start: 20181107, end: 20181110

REACTIONS (8)
  - Off label use [Recovered/Resolved]
  - Device dislocation [Recovered/Resolved]
  - Incorrect route of product administration [Not Recovered/Not Resolved]
  - Drug effect variable [Unknown]
  - Gait disturbance [Unknown]
  - Pain [Unknown]
  - Incorrect route of product administration [Recovered/Resolved]
  - Freezing phenomenon [Unknown]

NARRATIVE: CASE EVENT DATE: 20180929
